FAERS Safety Report 22793146 (Version 2)
Quarter: 2023Q4

REPORT INFORMATION
  Report Type: Report from Study
  Country: US (occurrence: US)
  Receive Date: 20230807
  Receipt Date: 20231018
  Transmission Date: 20240109
  Serious: No
  Sender: FDA-Public Use
  Company Number: US-SA-SAC20230803000805

PATIENT
  Age: 52 Year
  Sex: Female

DRUGS (5)
  1. DUPIXENT [Suspect]
     Active Substance: DUPILUMAB
     Indication: Dermatitis atopic
     Dosage: 300 MG, QOW
     Route: 058
     Dates: start: 20221226, end: 2023
  2. DUPIXENT [Suspect]
     Active Substance: DUPILUMAB
     Indication: Eczema
     Dosage: 300 MG, EVERY 3 WEEKS
     Route: 058
     Dates: start: 2023, end: 2023
  3. DUPIXENT [Suspect]
     Active Substance: DUPILUMAB
     Dosage: 300 MG, EVERY 4 WEEKS
     Route: 058
     Dates: start: 2023, end: 2023
  4. DUPIXENT [Suspect]
     Active Substance: DUPILUMAB
     Dosage: 300 MG, EVERY 3 WEEKS
     Route: 058
     Dates: start: 2023, end: 2023
  5. DUPIXENT [Suspect]
     Active Substance: DUPILUMAB
     Dosage: 300 MG, QOW
     Route: 058
     Dates: start: 2023

REACTIONS (9)
  - Injection site urticaria [Unknown]
  - Nausea [Unknown]
  - Malaise [Unknown]
  - Urticaria [Unknown]
  - Rash [Unknown]
  - Eczema [Unknown]
  - Product preparation error [Unknown]
  - Off label use [Unknown]
  - Inappropriate schedule of product administration [Unknown]

NARRATIVE: CASE EVENT DATE: 20230101
